FAERS Safety Report 6240180-9 (Version None)
Quarter: 2009Q2

REPORT INFORMATION
  Report Type: 
  Country: None (occurrence: None)
  Receive Date: 20090619
  Receipt Date: 20090604
  Transmission Date: 20091009
  Serious: Yes (Death, Hospitalization)
  Sender: FDA-Public Use
  Company Number: 2008AL011198

PATIENT
  Age: 70 Year
  Sex: Male

DRUGS (1)
  1. DIGOXIN [Suspect]
     Indication: ATRIAL FIBRILLATION
     Dosage: PO
     Route: 048

REACTIONS (14)
  - ANHEDONIA [None]
  - ANOXIC ENCEPHALOPATHY [None]
  - ANXIETY [None]
  - CARDIAC ARREST [None]
  - CARDIO-RESPIRATORY ARREST [None]
  - ECONOMIC PROBLEM [None]
  - FALL [None]
  - FATIGUE [None]
  - INJURY [None]
  - PAIN [None]
  - RESPIRATORY FAILURE [None]
  - THERAPEUTIC AGENT TOXICITY [None]
  - VENTRICULAR FIBRILLATION [None]
  - VENTRICULAR TACHYCARDIA [None]
